FAERS Safety Report 7162328-4 (Version None)
Quarter: 2010Q4

REPORT INFORMATION
  Report Type: 
  Country: None (occurrence: None)
  Receive Date: 20101215
  Receipt Date: 20091019
  Transmission Date: 20110411
  Serious: Yes (Other)
  Sender: FDA-Public Use
  Company Number: US-PFIZER INC-2009253024

PATIENT
  Sex: Female
  Weight: 54.422 kg

DRUGS (2)
  1. NEURONTIN [Suspect]
     Indication: NERVE INJURY
  2. LYRICA [Suspect]

REACTIONS (2)
  - DEAFNESS [None]
  - DRUG INEFFECTIVE [None]
